FAERS Safety Report 24721603 (Version 1)
Quarter: 2024Q4

REPORT INFORMATION
  Report Type: Report from Study
  Country: CA (occurrence: CA)
  Receive Date: 20241211
  Receipt Date: 20241211
  Transmission Date: 20250114
  Serious: Yes (Death)
  Sender: PFIZER
  Company Number: CA-PFIZER INC-PV202400160447

PATIENT

DRUGS (3)
  1. BORTEZOMIB [Suspect]
     Active Substance: BORTEZOMIB
     Indication: Plasma cell myeloma refractory
     Dosage: GIVEN ON DAYS 1, 4, 8, AND 11
  2. DEXAMETHASONE [Concomitant]
     Active Substance: DEXAMETHASONE
     Indication: Plasma cell myeloma refractory
     Dosage: GIVEN ON DAYS 1, 4, 8, AND 11
  3. LINSITINIB [Concomitant]
     Active Substance: LINSITINIB
     Indication: Plasma cell myeloma refractory
     Dosage: 75-150MG BID GIVEN DAILY ON A 21-DAY CYCLE
     Route: 048

REACTIONS (1)
  - Cardiac disorder [Fatal]
